FAERS Safety Report 6228856-0 (Version None)
Quarter: 2009Q2

REPORT INFORMATION
  Report Type: 
  Country: None (occurrence: None)
  Receive Date: 20090615
  Receipt Date: 20070502
  Transmission Date: 20091009
  Serious: Yes (Other)
  Sender: FDA-Public Use
  Company Number: US-ASTRAZENECA-2006UW22340

PATIENT
  Age: 20974 Day
  Sex: Female
  Weight: 84.4 kg

DRUGS (47)
  1. SEROQUEL [Suspect]
     Indication: NERVOUSNESS
     Dosage: 25-600 MG
     Route: 048
     Dates: start: 19991130
  2. SEROQUEL [Suspect]
     Indication: DEPRESSION
     Dosage: 25-600 MG
     Route: 048
     Dates: start: 19991130
  3. SEROQUEL [Suspect]
     Route: 048
     Dates: start: 20030101
  4. SEROQUEL [Suspect]
     Route: 048
     Dates: start: 20030101
  5. SEROQUEL [Suspect]
     Route: 048
  6. SEROQUEL [Suspect]
     Route: 048
  7. CLOZARIL [Concomitant]
  8. HALDOL [Concomitant]
  9. RISPERDAL [Concomitant]
  10. RISPERDAL [Concomitant]
  11. NEURONTIN [Concomitant]
  12. PAXIL [Concomitant]
  13. LANTUS [Concomitant]
  14. KLONOPIN [Concomitant]
  15. EFFEXOR XR [Concomitant]
     Route: 048
     Dates: start: 20030124
  16. CLONAZEPAM [Concomitant]
     Dosage: 1/2 IN MORNING, 1 AT BEDTIME
     Route: 048
     Dates: start: 20030124
  17. ZYPREXA [Concomitant]
     Route: 048
     Dates: start: 20030124
  18. LOTENSIN [Concomitant]
     Route: 048
     Dates: start: 20030124
  19. ZOCOR [Concomitant]
     Indication: HYPERLIPIDAEMIA
     Route: 048
     Dates: start: 20030124
  20. ACTOS [Concomitant]
     Route: 048
     Dates: start: 20030124
  21. ALLEGRA [Concomitant]
     Route: 048
  22. ASPIRIN [Concomitant]
     Route: 048
     Dates: start: 20031114
  23. LISINOPRIL [Concomitant]
     Dosage: 5-40 MG
     Route: 048
     Dates: start: 20061112
  24. COGENTIN [Concomitant]
     Route: 048
     Dates: start: 20061112
  25. PLAVIX [Concomitant]
     Route: 048
     Dates: start: 20061112
  26. METOPROLOL SUCCINATE [Concomitant]
     Route: 048
     Dates: start: 20061112
  27. IBUPROFEN [Concomitant]
     Route: 048
     Dates: start: 20061127
  28. PROTONIX [Concomitant]
     Route: 048
     Dates: start: 20061127
  29. GEODON [Concomitant]
     Route: 048
     Dates: start: 20031120
  30. RESTORIL [Concomitant]
     Indication: SOMNOLENCE
     Route: 048
     Dates: start: 20031114
  31. CLARITIN [Concomitant]
     Route: 048
     Dates: start: 20050204
  32. LEXAPRO [Concomitant]
     Route: 048
     Dates: start: 20050204
  33. MENEST [Concomitant]
     Route: 048
     Dates: start: 20050204
  34. SUCRALFATE [Concomitant]
     Route: 048
  35. NAPROXEN [Concomitant]
     Route: 048
  36. PHENERGAN [Concomitant]
     Indication: NAUSEA
     Route: 048
  37. VICODIN [Concomitant]
     Indication: PAIN
     Dosage: EVERY SIX HOURS
     Route: 048
     Dates: start: 20050204
  38. KEPPRA [Concomitant]
     Route: 048
     Dates: start: 20031114
  39. NEXIUM [Concomitant]
     Route: 048
     Dates: start: 20031114
  40. XANAX [Concomitant]
     Route: 048
     Dates: start: 20031114
  41. AMBIEN [Concomitant]
     Route: 048
     Dates: start: 20070806
  42. TOPROL-XL [Concomitant]
     Dates: start: 20070806
  43. COZAAR [Concomitant]
     Dates: start: 20070806
  44. LIPITOR [Concomitant]
     Dates: start: 20070806
  45. ULTRAM [Concomitant]
     Dates: start: 20070806
  46. BENAZEPRIL HYDROCHLORIDE [Concomitant]
     Dosage: 20, 25 MG EVERY MORNING
     Route: 048
     Dates: start: 20050204
  47. HYDROCHLOROTHIAZIDE [Concomitant]
     Dosage: 20, 25 MG EVERY MORNING
     Route: 048
     Dates: start: 20050204

REACTIONS (4)
  - DIABETES MELLITUS [None]
  - DIABETIC NEUROPATHY [None]
  - NEUROPATHY PERIPHERAL [None]
  - PANCREATITIS [None]
